FAERS Safety Report 12482396 (Version 3)
Quarter: 2016Q3

REPORT INFORMATION
  Report Type: Spontaneous
  Country: US (occurrence: US)
  Receive Date: 20160620
  Receipt Date: 20160826
  Transmission Date: 20161109
  Serious: No
  Sender: FDA-Public Use
  Company Number: US-LUNDBECK-DKLU2014664

PATIENT
  Age: 63 Year
  Sex: Female

DRUGS (2)
  1. NORTHERA [Suspect]
     Active Substance: DROXIDOPA
     Indication: PRODUCT USED FOR UNKNOWN INDICATION
     Dosage: TITRATION SCHEDULE A
     Route: 065
     Dates: start: 20160528
  2. NORTHERA [Suspect]
     Active Substance: DROXIDOPA
     Route: 065
     Dates: end: 20160613

REACTIONS (5)
  - Insomnia [Unknown]
  - Pruritus [Unknown]
  - Peripheral swelling [Unknown]
  - Headache [Unknown]
  - Mouth swelling [Unknown]

NARRATIVE: CASE EVENT DATE: 20160613
